FAERS Safety Report 9230593 (Version 1)
Quarter: 2013Q2

REPORT INFORMATION
  Report Type: Spontaneous
  Country: US (occurrence: US)
  Receive Date: 20130415
  Receipt Date: 20130415
  Transmission Date: 20140414
  Serious: No
  Sender: FDA-Public Use
  Company Number: US-BAYER-2013-046249

PATIENT
  Age: 70 Year
  Sex: Male
  Weight: 65.76 kg

DRUGS (1)
  1. ALEVE TABLET [Suspect]
     Indication: ARTHRITIS
     Dosage: 2 DF, BID
     Route: 048
     Dates: start: 201302

REACTIONS (3)
  - Libido decreased [Not Recovered/Not Resolved]
  - Incorrect dose administered [None]
  - Incorrect drug administration duration [None]
